FAERS Safety Report 6735124-7 (Version None)
Quarter: 2010Q2

REPORT INFORMATION
  Report Type: 
  Country: None (occurrence: None)
  Receive Date: 20100519
  Receipt Date: 20100519
  Transmission Date: 20101027
  Serious: No
  Sender: FDA-Public Use
  Company Number: None

PATIENT
  Age: 51 Year
  Sex: Female
  Weight: 135.1719 kg

DRUGS (1)
  1. CVS SPECTRAVITE SENIOR CHEWABLE DAILY TAB CVS/SPECTRAVITE [Suspect]

REACTIONS (6)
  - MEDICATION ERROR [None]
  - PRODUCT LABEL ON WRONG PRODUCT [None]
  - PRODUCT PACKAGING ISSUE [None]
  - PRODUCT SHAPE ISSUE [None]
  - PRODUCT TASTE ABNORMAL [None]
  - TABLET ISSUE [None]
